FAERS Safety Report 7820487-1 (Version None)
Quarter: 2011Q4

REPORT INFORMATION
  Report Type: 
  Country: None (occurrence: None)
  Receive Date: 20111018
  Receipt Date: 20111005
  Transmission Date: 20120403
  Serious: Yes (Hospitalization)
  Sender: FDA-Public Use
  Company Number: US-BAYER-2011-053095

PATIENT
  Age: 29 Year
  Sex: Female
  Weight: 53.061 kg

DRUGS (3)
  1. YAZ [Suspect]
     Indication: CONTRACEPTION
     Dosage: UNK
     Dates: start: 20080301, end: 20090925
  2. LIPITOR [Concomitant]
  3. IBUPROFEN [Concomitant]

REACTIONS (3)
  - PAIN [None]
  - INJURY [None]
  - CEREBROVASCULAR ACCIDENT [None]
